FAERS Safety Report 4772991-0 (Version None)
Quarter: 2005Q3

REPORT INFORMATION
  Report Type: 
  Country: None (occurrence: None)
  Receive Date: 20050915
  Receipt Date: 20050829
  Transmission Date: 20060218
  Serious: Yes (Death)
  Sender: FDA-Public Use
  Company Number: EWC050142389

PATIENT
  Age: 39 Year
  Sex: Male

DRUGS (4)
  1. STRATTERA [Suspect]
     Indication: ATTENTION DEFICIT/HYPERACTIVITY DISORDER
     Dosage: 40 MG DAY
     Dates: start: 20041208
  2. ZYPREXA [Concomitant]
  3. CIPRALEX (ESCITALOPRAM OXALATE) [Concomitant]
  4. DIAPAM (DIAZEPAM) [Concomitant]

REACTIONS (1)
  - COMPLETED SUICIDE [None]
